FAERS Safety Report 20092083 (Version 1)
Quarter: 2021Q4

REPORT INFORMATION
  Report Type: Spontaneous
  Country: DE (occurrence: DE)
  Receive Date: 20211119
  Receipt Date: 20211119
  Transmission Date: 20220303
  Serious: Yes (Other)
  Sender: FDA-Public Use
  Company Number: DE-ARISTO PHARMA-CIPR202108311

PATIENT
  Sex: Male

DRUGS (1)
  1. CIPROFLOXACIN [Suspect]
     Active Substance: CIPROFLOXACIN
     Indication: Product used for unknown indication
     Dosage: UNK, 6XW
     Dates: start: 2018

REACTIONS (5)
  - Sarcoma [Recovered/Resolved]
  - Arrhythmia [Recovering/Resolving]
  - Endocarditis [Recovering/Resolving]
  - Neoplasm [Recovered/Resolved]
  - Peyronie^s disease [Recovering/Resolving]
